FAERS Safety Report 7193099-3 (Version None)
Quarter: 2010Q4

REPORT INFORMATION
  Report Type: 
  Country: None (occurrence: None)
  Receive Date: 20101223
  Receipt Date: 20101215
  Transmission Date: 20110411
  Serious: Yes (Death, Life-Threatening)
  Sender: FDA-Public Use
  Company Number: JP-MERCK-1012USA03104

PATIENT
  Age: 55 Year
  Sex: Male

DRUGS (11)
  1. DECADRON [Suspect]
     Indication: LYMPHOMA
     Route: 048
  2. IRINOTECAN HYDROCHLORIDE [Concomitant]
     Route: 042
  3. ETOPOSIDE [Concomitant]
     Route: 065
  4. CARBOPLATIN [Concomitant]
     Route: 042
  5. GEMCITABINE HYDROCHLORIDE [Concomitant]
     Route: 042
  6. CISPLATIN [Concomitant]
     Route: 042
  7. CYCLOPHOSPHAMIDE [Concomitant]
     Route: 065
  8. ONCOVIN [Concomitant]
     Route: 042
  9. DOXORUBICIN HYDROCHLORIDE [Concomitant]
     Route: 042
  10. PREDNISOLONE [Concomitant]
     Route: 065
  11. IFOSFAMIDE [Concomitant]
     Route: 042

REACTIONS (2)
  - POLYOMAVIRUS-ASSOCIATED NEPHROPATHY [None]
  - RENAL FAILURE ACUTE [None]
